FAERS Safety Report 9196033 (Version 1)
Quarter: 2013Q1

REPORT INFORMATION
  Report Type: Spontaneous
  Country: US (occurrence: US)
  Receive Date: 20130328
  Receipt Date: 20130328
  Transmission Date: 20140127
  Serious: Yes (Death, Hospitalization)
  Sender: FDA-Public Use
  Company Number: PHEH2013US006965

PATIENT
  Sex: Female

DRUGS (3)
  1. AFINITOR [Suspect]
  2. FEMARA [Suspect]
  3. SPRYCEL [Suspect]

REACTIONS (3)
  - Death [Fatal]
  - Confusional state [Unknown]
  - Cerebral haemorrhage [Unknown]
